FAERS Safety Report 11399337 (Version 1)
Quarter: 2015Q3

REPORT INFORMATION
  Report Type: Spontaneous
  Country: US (occurrence: None)
  Receive Date: 20150818
  Receipt Date: 20150818
  Transmission Date: 20151125
  Serious: Yes (Hospitalization)
  Sender: FDA-Public Use
  Company Number: None

PATIENT
  Sex: Female

DRUGS (1)
  1. IBRANCE [Suspect]
     Active Substance: PALBOCICLIB
     Indication: BREAST CANCER
     Dosage: QD 21D ON 7 DAYS OFF
     Route: 048
     Dates: start: 20150626, end: 20150810

REACTIONS (6)
  - Dehydration [None]
  - Drug screen positive [None]
  - Nausea [None]
  - Vomiting [None]
  - Diarrhoea [None]
  - Thinking abnormal [None]
